FAERS Safety Report 12262234 (Version 1)
Quarter: 2016Q2

REPORT INFORMATION
  Report Type: Spontaneous
  Country: EG (occurrence: None)
  Receive Date: 20160412
  Receipt Date: 20160412
  Transmission Date: 20160815
  Serious: Yes (Disabling, Other)
  Sender: FDA-Public Use
  Company Number: None

PATIENT
  Age: 9 Year
  Sex: Male
  Weight: 45 kg

DRUGS (1)
  1. STRATTERA [Suspect]
     Active Substance: ATOMOXETINE HYDROCHLORIDE
     Indication: ATTENTION DEFICIT/HYPERACTIVITY DISORDER
     Dosage: 28 CAPSULE(S) IN THE MORNING TAKEN BY MOUTH
     Route: 048

REACTIONS (5)
  - Autism [None]
  - Cognitive disorder [None]
  - Developmental regression [None]
  - Speech disorder [None]
  - Screaming [None]
